FAERS Safety Report 9269753 (Version 3)
Quarter: 2013Q2

REPORT INFORMATION
  Report Type: Spontaneous
  Country: JP (occurrence: JP)
  Receive Date: 20130503
  Receipt Date: 20130626
  Transmission Date: 20140414
  Serious: Yes (Life-Threatening, Other)
  Sender: FDA-Public Use
  Company Number: JP-GENZYME-CERZ-1002934

PATIENT
  Age: 1 Year
  Sex: Female
  Weight: 7.9 kg

DRUGS (23)
  1. CEREZYME [Suspect]
     Indication: GAUCHER^S DISEASE
     Dosage: 400 MG (50 MG/KG), Q2W
     Route: 042
     Dates: start: 20121206
  2. AMBROXOL HYDROCHLORIDE [Concomitant]
     Indication: GASTROSTOMY
     Dosage: 60 MG, TID (BOLUS ADMINISTRATION)
     Route: 065
     Dates: start: 20130131
  3. AMBROXOL HYDROCHLORIDE [Concomitant]
     Indication: GAUCHER^S DISEASE
  4. TIZANIDINE HYDROCHLORIDE [Concomitant]
     Indication: GASTROSTOMY
     Dosage: 0.5 MG, TID
     Route: 065
     Dates: start: 20120904
  5. TIZANIDINE HYDROCHLORIDE [Concomitant]
     Indication: CEREBRAL PALSY
  6. BACLOFEN [Concomitant]
     Indication: GASTROSTOMY
     Dosage: 1.7 MG, TID
     Route: 065
     Dates: start: 20120912
  7. BACLOFEN [Concomitant]
     Indication: CEREBRAL PALSY
  8. DANTROLENE SODIUM [Concomitant]
     Indication: GASTROSTOMY
     Dosage: 10 MG, TID
     Dates: start: 20120711
  9. DANTROLENE SODIUM [Concomitant]
     Indication: CEREBRAL PALSY
  10. DIAZEPAM [Concomitant]
     Indication: GASTROSTOMY
     Dosage: 4 ML, TID
     Route: 065
     Dates: start: 20120908
  11. DIAZEPAM [Concomitant]
     Indication: CEREBRAL PALSY
  12. FAMOTIDINE [Concomitant]
     Indication: GASTROSTOMY
     Dosage: 2.5 MG, BID
     Route: 065
     Dates: start: 20120830
  13. FAMOTIDINE [Concomitant]
     Indication: GASTRITIS
  14. FERRIC PYROPHOSPHATE [Concomitant]
     Indication: GASTROSTOMY
     Dosage: 2 ML, BID
     Route: 065
     Dates: start: 20120904
  15. FERRIC PYROPHOSPHATE [Concomitant]
     Indication: IRON DEFICIENCY ANAEMIA
  16. PHENOBARBITAL [Concomitant]
     Indication: GASTROSTOMY
     Dosage: 13 MG, TID
     Route: 065
     Dates: start: 20120905
  17. PHENOBARBITAL [Concomitant]
     Indication: SEDATION
  18. RAMELTEON [Concomitant]
     Indication: GASTROSTOMY
     Dosage: 2 MG, QD
     Route: 065
     Dates: start: 20130417
  19. RAMELTEON [Concomitant]
     Indication: SLEEP DISORDER
  20. TRICLOFOS SODIUM [Concomitant]
     Indication: GASTROSTOMY
     Dosage: 6 ML, TID
     Route: 065
     Dates: start: 201209
  21. TRICLOFOS SODIUM [Concomitant]
     Indication: SEDATION
  22. PARENTERAL NUTRITION [Concomitant]
     Indication: GASTROSTOMY
     Dosage: 120 ML, TID
     Route: 065
     Dates: start: 20130313
  23. PARENTERAL NUTRITION [Concomitant]
     Indication: MEDICAL DIET

REACTIONS (3)
  - Interstitial lung disease [Not Recovered/Not Resolved]
  - Chronic respiratory failure [Unknown]
  - Hypothyroidism [Not Recovered/Not Resolved]
